FAERS Safety Report 9415746 (Version 4)
Quarter: 2013Q3

REPORT INFORMATION
  Report Type: Spontaneous
  Country: JP (occurrence: JP)
  Receive Date: 20130723
  Receipt Date: 20130814
  Transmission Date: 20140515
  Serious: Yes (Death, Other)
  Sender: FDA-Public Use
  Company Number: JP-ROCHE-1251875

PATIENT
  Age: 58 Year
  Sex: Female
  Weight: 41 kg

DRUGS (11)
  1. XELODA [Suspect]
     Indication: BREAST CANCER METASTATIC
     Route: 048
     Dates: start: 20130701, end: 20130701
  2. XELODA [Suspect]
     Indication: BREAST CANCER METASTATIC
     Route: 048
     Dates: start: 20130702, end: 20130704
  3. XELODA [Suspect]
     Indication: BREAST CANCER METASTATIC
     Route: 048
     Dates: start: 20130705, end: 20130705
  4. HERCEPTIN [Suspect]
     Indication: BREAST CANCER
     Dosage: DOSAGE IS UNCERTAIN
     Route: 041
     Dates: start: 20120925, end: 20121227
  5. HERCEPTIN [Suspect]
     Dosage: DOSAGE IS UNCERTAIN
     Route: 041
     Dates: start: 20130312, end: 20130604
  6. TYKERB [Suspect]
     Indication: BREAST CANCER METASTATIC
     Route: 048
     Dates: start: 20130701, end: 20130705
  7. DOCETAXEL [Suspect]
     Indication: BREAST CANCER
     Dosage: DRUG REPORTED AS : DOCETAXEL HYDRATE
     Route: 041
     Dates: start: 20120925, end: 20121128
  8. TAKEPRON [Concomitant]
     Route: 048
     Dates: start: 20130530, end: 20130710
  9. EXCEGRAN [Concomitant]
     Indication: METASTASES TO CENTRAL NERVOUS SYSTEM
     Route: 048
     Dates: start: 20130625, end: 20130710
  10. RINDERON [Concomitant]
     Dosage: DOSAGE IS UNCERTAIN.
     Route: 048
  11. MAGMITT [Concomitant]
     Indication: CONSTIPATION
     Dosage: DOSAGE IS UNCERTAIN.
     Route: 048
     Dates: start: 20130614, end: 20130710

REACTIONS (5)
  - Drug-induced liver injury [Fatal]
  - Gastrointestinal haemorrhage [Unknown]
  - Shock [Unknown]
  - Diarrhoea [Recovering/Resolving]
  - Diarrhoea [Unknown]
